FAERS Safety Report 17569817 (Version 1)
Quarter: 2020Q1

REPORT INFORMATION
  Report Type: Spontaneous
  Country: US (occurrence: US)
  Receive Date: 20200323
  Receipt Date: 20200323
  Transmission Date: 20200409
  Serious: Yes (Life-Threatening, Other)
  Sender: FDA-Public Use
  Company Number: US-STRIDES ARCOLAB LIMITED-2019SP013125

PATIENT
  Age: 14 Year
  Sex: Female

DRUGS (2)
  1. OSELTAMIVIR [Suspect]
     Active Substance: OSELTAMIVIR
     Indication: PRODUCT USED FOR UNKNOWN INDICATION
     Dosage: UNK
     Route: 065
  2. IBUPROFEN. [Suspect]
     Active Substance: IBUPROFEN
     Indication: PRODUCT USED FOR UNKNOWN INDICATION
     Dosage: UNK
     Route: 065

REACTIONS (8)
  - Vaginal ulceration [Unknown]
  - Rectal ulcer [Unknown]
  - Arthralgia [Unknown]
  - Vulvovaginal pain [Unknown]
  - Stevens-Johnson syndrome [Unknown]
  - Proctalgia [Unknown]
  - Mouth ulceration [Unknown]
  - Eye ulcer [Unknown]
